FAERS Safety Report 7234471-2 (Version None)
Quarter: 2011Q1

REPORT INFORMATION
  Report Type: 
  Country: None (occurrence: None)
  Receive Date: 20110119
  Receipt Date: 20110107
  Transmission Date: 20110831
  Serious: Yes (Other)
  Sender: FDA-Public Use
  Company Number: FR-NAPPMUNDI-GBR-2010-0007537

PATIENT
  Sex: Male

DRUGS (16)
  1. ENDOXAN                            /00021101/ [Suspect]
     Indication: PRODUCT USED FOR UNKNOWN INDICATION
     Dosage: 1390 MG, DAILY
     Route: 042
     Dates: start: 20101015, end: 20101017
  2. FLUDARABINE [Suspect]
     Indication: PRODUCT USED FOR UNKNOWN INDICATION
     Dosage: 56 MG, DAILY
     Route: 042
     Dates: start: 20101015, end: 20101017
  3. CAELYX [Concomitant]
  4. MOPRAL                             /00661201/ [Concomitant]
     Dosage: 20 MG, DAILY
     Route: 048
  5. VANCOMYCIN [Concomitant]
     Dosage: UNK
     Dates: start: 20101019
  6. CELLCEPT [Concomitant]
     Dosage: 1 G, BID
     Route: 048
     Dates: start: 20101019
  7. ZELITREX [Concomitant]
     Dosage: 2 TABLET, DAILY
     Route: 048
  8. LASIX [Concomitant]
     Dosage: 20 MG, TID
     Route: 048
  9. CIPROFLOXACIN HCL [Concomitant]
     Dosage: UNK
     Dates: start: 20101019
  10. TRIFLUCAN [Concomitant]
     Dosage: 200 MG, DAILY
     Route: 048
  11. CIPROFLOXACIN HCL [Concomitant]
     Dosage: UNK
     Dates: start: 20101016
  12. OXYNORM CAPSULES 5 MG [Suspect]
     Indication: BACK PAIN
     Dosage: 5 MG, QID
     Route: 048
     Dates: end: 20101020
  13. FORTUM                             /00559701/ [Concomitant]
     Dosage: UNK
     Dates: start: 20101019
  14. OXYCONTIN [Suspect]
     Indication: BACK PAIN
     Dosage: 10 MG, BID
     Route: 048
     Dates: end: 20101020
  15. CYCLOSPORINE [Concomitant]
     Dosage: 150 MG, DAILY
     Route: 048
     Dates: start: 20101018
  16. CHEMOTHERAPEUTICS [Concomitant]

REACTIONS (9)
  - ANGIOEDEMA [None]
  - DISTURBANCE IN ATTENTION [None]
  - HYPOTENSION [None]
  - CONFUSIONAL STATE [None]
  - MIOSIS [None]
  - LARYNGEAL DYSPNOEA [None]
  - HYPERTENSION [None]
  - TACHYCARDIA [None]
  - RENAL FAILURE [None]
